FAERS Safety Report 22016269 (Version 1)
Quarter: 2023Q1

REPORT INFORMATION
  Report Type: Spontaneous
  Country: CA (occurrence: CA)
  Receive Date: 20230221
  Receipt Date: 20230221
  Transmission Date: 20230418
  Serious: Yes (Death)
  Sender: FDA-Public Use
  Company Number: CA-KARYOPHARM THERAPEUTICS, INC.-2023KPT000562

PATIENT

DRUGS (3)
  1. XPOVIO [Suspect]
     Active Substance: SELINEXOR
     Indication: Plasma cell myeloma
     Dosage: 60 MG, ONCE WEEKLY FOR 4 WEEKS
     Route: 048
     Dates: start: 20230130, end: 202302
  2. DEXAMETHASONE [Concomitant]
     Active Substance: DEXAMETHASONE
  3. POMALIDOMIDE [Concomitant]
     Active Substance: POMALIDOMIDE

REACTIONS (4)
  - Plasma cell myeloma [Fatal]
  - Fatigue [Recovering/Resolving]
  - Constipation [Unknown]
  - Weight decreased [Unknown]

NARRATIVE: CASE EVENT DATE: 20230130
